FAERS Safety Report 7051005-6 (Version None)
Quarter: 2010Q4

REPORT INFORMATION
  Report Type: 
  Country: None (occurrence: None)
  Receive Date: 20101019
  Receipt Date: 20101006
  Transmission Date: 20110411
  Serious: Yes (Hospitalization)
  Sender: FDA-Public Use
  Company Number: CH-ELI_LILLY_AND_COMPANY-CH201010001429

PATIENT
  Age: 73 Year
  Sex: Female

DRUGS (9)
  1. HUMALOG [Suspect]
     Route: 058
     Dates: end: 20100828
  2. LEVEMIR [Concomitant]
     Route: 058
     Dates: end: 20100828
  3. DILATREND [Concomitant]
     Dosage: 6.5 MG, 2/D
     Route: 048
  4. ASPIRIN [Concomitant]
     Dosage: 1 D/F, DAILY (1/D)
     Route: 048
  5. ENAPREN [Concomitant]
     Dosage: UNK UNK, DAILY (1/D)
     Route: 048
  6. MODURETIC 5-50 [Concomitant]
     Dosage: UNK, UNK
     Route: 048
  7. NITRODERM [Concomitant]
     Dosage: UNK, UNK
     Route: 061
  8. FOSAMAX [Concomitant]
     Dosage: UNK, UNK
     Route: 048
  9. EUTHYROX [Concomitant]
     Dosage: UNK, UNK
     Route: 048

REACTIONS (3)
  - ASTHENIA [None]
  - HYPOGLYCAEMIC UNCONSCIOUSNESS [None]
  - HYPOPHAGIA [None]
